FAERS Safety Report 8428939 (Version 21)
Quarter: 2020Q4

REPORT INFORMATION
  Report Type: Report from Study
  Country: CA (occurrence: CA)
  Receive Date: 20120227
  Receipt Date: 20201208
  Transmission Date: 20210114
  Serious: Yes (Hospitalization, Other)
  Sender: FDA-Public Use
  Company Number: PHHY2012CA010506

PATIENT
  Age: 62 Year
  Sex: Female

DRUGS (13)
  1. FOLIC ACID. [Concomitant]
     Active Substance: FOLIC ACID
     Indication: PRODUCT USED FOR UNKNOWN INDICATION
     Dosage: UNK
     Route: 065
  2. SYNTHROID [Concomitant]
     Active Substance: LEVOTHYROXINE SODIUM
     Indication: PRODUCT USED FOR UNKNOWN INDICATION
     Dosage: UNK
     Route: 065
  3. PANTOLOC [Concomitant]
     Active Substance: PANTOPRAZOLE SODIUM
     Indication: PRODUCT USED FOR UNKNOWN INDICATION
     Dosage: UNK
     Route: 065
  4. SANDOSTATIN LAR DEPOT [Suspect]
     Active Substance: OCTREOTIDE ACETATE
     Dosage: 10 MG, QMO (EVERY 4 WEEKS)
     Route: 030
     Dates: start: 20150202
  5. VITAMIN B12 [Concomitant]
     Active Substance: CYANOCOBALAMIN
     Indication: PRODUCT USED FOR UNKNOWN INDICATION
     Dosage: UNK
     Route: 065
  6. SANDOSTATIN LAR DEPOT [Suspect]
     Active Substance: OCTREOTIDE ACETATE
     Indication: ANGIODYSPLASIA
     Dosage: 10 MG, QMO (EVERY 4 WEEKS)
     Route: 030
     Dates: start: 20120131
  7. SANDOSTATIN LAR DEPOT [Suspect]
     Active Substance: OCTREOTIDE ACETATE
     Dosage: 10 MG, QMO (ONCE A MONTH)
     Route: 030
     Dates: start: 20130131
  8. OXAZEPAM. [Concomitant]
     Active Substance: OXAZEPAM
     Indication: PRODUCT USED FOR UNKNOWN INDICATION
     Route: 005
  9. IRON [Concomitant]
     Active Substance: IRON
     Indication: ANAEMIA
     Dosage: UNK
     Route: 042
  10. VENOFER [Concomitant]
     Active Substance: IRON SUCROSE
     Indication: PRODUCT USED FOR UNKNOWN INDICATION
     Dosage: UNK
     Route: 065
     Dates: start: 20120523
  11. VITAMIN B [Concomitant]
     Active Substance: VITAMIN B
     Indication: PRODUCT USED FOR UNKNOWN INDICATION
     Dosage: UNK
     Route: 048
  12. SUPEUDOL [Concomitant]
     Active Substance: OXYCODONE HYDROCHLORIDE
     Indication: PRODUCT USED FOR UNKNOWN INDICATION
     Dosage: UNK
     Route: 065
  13. VITAMIN D [Concomitant]
     Active Substance: VITAMIN D NOS
     Indication: PRODUCT USED FOR UNKNOWN INDICATION
     Dosage: UNK
     Route: 048

REACTIONS (47)
  - Eye oedema [Unknown]
  - Blood pressure increased [Unknown]
  - Sciatica [Unknown]
  - Constipation [Unknown]
  - Pyrexia [Unknown]
  - Visual impairment [Unknown]
  - Ecchymosis [Unknown]
  - Malaise [Unknown]
  - General physical health deterioration [Unknown]
  - Confusional state [Unknown]
  - Anxiety [Unknown]
  - Heart rate increased [Unknown]
  - Large intestine infection [Unknown]
  - Multiple sclerosis [Unknown]
  - Vision blurred [Unknown]
  - Swelling face [Unknown]
  - Erythema [Unknown]
  - Syncope [Unknown]
  - Wound secretion [Unknown]
  - Facial pain [Unknown]
  - Pallor [Unknown]
  - Product use in unapproved indication [Unknown]
  - Blood pressure decreased [Unknown]
  - Cellulitis [Unknown]
  - Cardiac disorder [Unknown]
  - Cyst [Unknown]
  - Head discomfort [Unknown]
  - Headache [Unknown]
  - Pain [Unknown]
  - Epistaxis [Unknown]
  - Palpitations [Unknown]
  - Skin cancer [Unknown]
  - Impaired healing [Unknown]
  - Hunger [Unknown]
  - Haemoglobin decreased [Unknown]
  - Asthenia [Unknown]
  - Dyspnoea [Unknown]
  - Hyperphagia [Unknown]
  - Paraesthesia [Unknown]
  - Feeling abnormal [Unknown]
  - Haemoglobin increased [Unknown]
  - Wound [Unknown]
  - Face oedema [Unknown]
  - Quality of life decreased [Unknown]
  - Dizziness [Unknown]
  - Abdominal pain [Unknown]
  - Injection site pain [Unknown]

NARRATIVE: CASE EVENT DATE: 20120131
